FAERS Safety Report 9823827 (Version 2)
Quarter: 2014Q1

REPORT INFORMATION
  Report Type: Spontaneous
  Country: US (occurrence: US)
  Receive Date: 20140116
  Receipt Date: 20140116
  Transmission Date: 20141002
  Serious: No
  Sender: FDA-Public Use
  Company Number: US-GILEAD-2011-0040656

PATIENT
  Sex: Female

DRUGS (10)
  1. LETAIRIS [Suspect]
     Indication: PULMONARY HYPERTENSION
     Route: 048
     Dates: start: 20110426
  2. VENTAVIS [Concomitant]
  3. TRACLEER [Concomitant]
  4. REVATIO [Concomitant]
  5. SPIRONOLACTONE [Concomitant]
  6. HYDROXYCHLOROQUINE [Concomitant]
  7. PREDNISONE [Concomitant]
  8. PROTONIX [Concomitant]
  9. ALPRAZOLAM [Concomitant]
  10. OXYGEN [Concomitant]

REACTIONS (3)
  - Fatigue [Not Recovered/Not Resolved]
  - Nervousness [Not Recovered/Not Resolved]
  - Thyroid disorder [Unknown]
